FAERS Safety Report 5055210-X (Version None)
Quarter: 2006Q3

REPORT INFORMATION
  Report Type: 
  Country: None (occurrence: None)
  Receive Date: 20060717
  Receipt Date: 20060711
  Transmission Date: 20061208
  Serious: Yes (Hospitalization, Other)
  Sender: FDA-Public Use
  Company Number: HQWYE220608MAY06

PATIENT
  Age: 51 Year
  Sex: Male
  Weight: 83.99 kg

DRUGS (17)
  1. RAPAMUNE [Suspect]
     Indication: PROPHYLAXIS AGAINST TRANSPLANT REJECTION
     Dosage: 6 MG 1X PER 1 DAY, ORAL
     Route: 048
     Dates: start: 20060110, end: 20060429
  2. TOPROL-XL [Concomitant]
  3. NORVASC [Concomitant]
  4. COZAAR [Concomitant]
  5. ASPIRIN [Concomitant]
  6. CELLCEPT [Concomitant]
  7. VALCYTE [Concomitant]
  8. PEPCID [Concomitant]
  9. PREDNISONE TAB [Concomitant]
  10. SEPTRA [Concomitant]
  11. NYSTATIN [Concomitant]
  12. CLINDAMYCIN PHOSPHATE [Concomitant]
  13. NEURONTIN [Concomitant]
  14. TYLENOL PM (DIPHENHYDRAMINE/PARACETAMOL) [Concomitant]
  15. UNISOM [Concomitant]
  16. AMBIEN [Concomitant]
  17. HUMALOG [Concomitant]

REACTIONS (4)
  - HAEMATOCRIT DECREASED [None]
  - KIDNEY TRANSPLANT REJECTION [None]
  - RASH PAPULAR [None]
  - WHITE BLOOD CELL COUNT DECREASED [None]
